FAERS Safety Report 4391519-0 (Version None)
Quarter: 2004Q3

REPORT INFORMATION
  Report Type: 
  Country: None (occurrence: None)
  Receive Date: 20040701
  Receipt Date: 20040618
  Transmission Date: 20050211
  Serious: Yes (Other)
  Sender: FDA-Public Use
  Company Number: 2004041542

PATIENT
  Sex: Female
  Weight: 47.1741 kg

DRUGS (13)
  1. ZOLOFT [Suspect]
     Indication: DEPRESSION
     Dosage: ORAL
     Route: 048
  2. ZYRTEC [Suspect]
     Indication: HYPERSENSITIVITY
     Dosage: 10 MG ( 1 IN 1 D ) ORAL
     Route: 048
     Dates: start: 20040601, end: 20040601
  3. ANTIDEPRESSANTS (ANTIDEPRESSANTS) [Suspect]
     Indication: DEPRESSION
  4. ZOLPIDEM TARTRATE [Suspect]
     Indication: SLEEP DISORDER
  5. GLUCOSAMINE W/CHONDROITIN SULFATES (ASCORBIC ACID, CHONDROITIN SULFATE [Concomitant]
  6. ATENOLOL [Concomitant]
  7. CENTRUM SILVER (ASCORBIC ACID, CALCIUM, MINERALS NOS, RETINOL, TOCOPHE [Concomitant]
  8. ACETYLSALICYLIC ACID SRT [Concomitant]
  9. CALCIUM (CALCIUM) [Concomitant]
  10. FUROSEMIDE [Concomitant]
  11. POTASSIUM (POTASSIUM) [Concomitant]
  12. OMEPRAZOLE [Concomitant]
  13. ESOMEPRAZOLE (ESOMEPRAZOLE) [Concomitant]

REACTIONS (17)
  - ANXIETY [None]
  - ARTHRITIS [None]
  - BODY HEIGHT DECREASED [None]
  - DEPRESSION [None]
  - DIFFICULTY IN WALKING [None]
  - EATING DISORDER [None]
  - FEELING JITTERY [None]
  - HAEMORRHAGE [None]
  - HEARING IMPAIRED [None]
  - HOARSENESS [None]
  - OLIGODIPSIA [None]
  - OSTEOPOROSIS [None]
  - PHARYNGOLARYNGEAL PAIN [None]
  - SKIN LACERATION [None]
  - SLEEP DISORDER [None]
  - THINKING ABNORMAL [None]
  - TREMOR [None]
